FAERS Safety Report 16783029 (Version 1)
Quarter: 2019Q3

REPORT INFORMATION
  Report Type: Spontaneous
  Country: DE (occurrence: DE)
  Receive Date: 20190906
  Receipt Date: 20190906
  Transmission Date: 20191005
  Serious: Yes (Life-Threatening, Hospitalization, Disabling, Other)
  Sender: FDA-Public Use
  Company Number: PHHY2019DE204849

PATIENT
  Age: 31 Year
  Sex: Female

DRUGS (12)
  1. CARBOPLATIN. [Suspect]
     Active Substance: CARBOPLATIN
     Dosage: 1 OT, Q3W (SECOND CYCLE)
     Route: 065
     Dates: start: 20190118, end: 20190118
  2. PEMETREXED DISODIUM [Suspect]
     Active Substance: PEMETREXED DISODIUM
     Dosage: 1 OT, Q3W (SECOND CYCLE)
     Route: 065
     Dates: start: 20190118, end: 20190118
  3. CARBOPLATIN. [Suspect]
     Active Substance: CARBOPLATIN
     Indication: NON-SMALL CELL LUNG CANCER STAGE IV
     Dosage: 1 OT, Q3W (FIRST CYCLE)
     Route: 065
     Dates: start: 20181227
  4. KEYTRUDA [Suspect]
     Active Substance: PEMBROLIZUMAB
     Dosage: 200 MG, Q3W
     Route: 065
     Dates: start: 20190301
  5. KEYTRUDA [Suspect]
     Active Substance: PEMBROLIZUMAB
     Dosage: 200 MG, Q3W
     Route: 065
     Dates: start: 20190523, end: 20190523
  6. KEYTRUDA [Suspect]
     Active Substance: PEMBROLIZUMAB
     Dosage: 200 MG, Q3W (SECOND CYCLE)
     Route: 065
     Dates: start: 20190118
  7. KEYTRUDA [Suspect]
     Active Substance: PEMBROLIZUMAB
     Dosage: 200 MG, Q3W
     Route: 065
     Dates: start: 20190503
  8. KEYTRUDA [Suspect]
     Active Substance: PEMBROLIZUMAB
     Dosage: 200 MG, Q3W
     Route: 065
     Dates: start: 20190208
  9. PEMETREXED DISODIUM [Suspect]
     Active Substance: PEMETREXED DISODIUM
     Indication: NON-SMALL CELL LUNG CANCER STAGE IV
     Dosage: 1 OT, Q3W (FIRST CYCLE)
     Route: 065
     Dates: start: 20181227
  10. KEYTRUDA [Suspect]
     Active Substance: PEMBROLIZUMAB
     Indication: NON-SMALL CELL LUNG CANCER STAGE IV
     Dosage: 200 MG, UNK (FIRST CYCLE)
     Route: 065
     Dates: start: 20181227
  11. KEYTRUDA [Suspect]
     Active Substance: PEMBROLIZUMAB
     Dosage: 200 MG, Q3W
     Route: 065
     Dates: start: 20190322
  12. KEYTRUDA [Suspect]
     Active Substance: PEMBROLIZUMAB
     Dosage: 200 MG, Q3W
     Route: 065
     Dates: start: 20190412

REACTIONS (11)
  - Performance status decreased [Unknown]
  - Drug intolerance [Unknown]
  - Autoimmune myocarditis [Recovered/Resolved with Sequelae]
  - Lymphadenopathy mediastinal [Unknown]
  - Ventricular tachycardia [Unknown]
  - Congestive cardiomyopathy [Recovered/Resolved with Sequelae]
  - Left ventricular dysfunction [Not Recovered/Not Resolved]
  - Inappropriate schedule of product administration [Unknown]
  - Pleural effusion [Unknown]
  - Cardiac failure chronic [Unknown]
  - Cardiac failure [Unknown]

NARRATIVE: CASE EVENT DATE: 20190117
